FAERS Safety Report 22128767 (Version 1)
Quarter: 2023Q1

REPORT INFORMATION
  Report Type: Spontaneous
  Country: RU (occurrence: None)
  Receive Date: 20230323
  Receipt Date: 20230323
  Transmission Date: 20230417
  Serious: Yes (Other)
  Sender: FDA-Public Use
  Company Number: RU-ROCHE-3097503

PATIENT

DRUGS (1)
  1. EMICIZUMAB [Suspect]
     Active Substance: EMICIZUMAB
     Indication: Factor VIII deficiency
     Route: 058
     Dates: start: 2021

REACTIONS (4)
  - Haemarthrosis [Unknown]
  - Traumatic haematoma [Unknown]
  - Injection site reaction [Unknown]
  - Nasopharyngitis [Unknown]
